FAERS Safety Report 9859742 (Version 3)
Quarter: 2014Q1

REPORT INFORMATION
  Report Type: Spontaneous
  Country: FR (occurrence: FR)
  Receive Date: 20140131
  Receipt Date: 20140203
  Transmission Date: 20141002
  Serious: Yes (Other)
  Sender: FDA-Public Use
  Company Number: FR-009507513-1312FRA006183

PATIENT
  Age: 47 Year
  Sex: Male
  Weight: 114 kg

DRUGS (5)
  1. ISENTRESS [Suspect]
     Indication: HIV INFECTION
     Dosage: 400 MG, BID
     Route: 048
     Dates: start: 20070925
  2. VIREAD [Suspect]
     Dosage: UNK
     Dates: start: 20070925
  3. NORVIR [Suspect]
     Dosage: UNK
     Dates: start: 20070925
  4. APTIVUS [Suspect]
     Dosage: UNK
     Dates: start: 20070925
  5. DIDANOSINE [Suspect]
     Dosage: UNK
     Dates: start: 20070925

REACTIONS (2)
  - Loose tooth [Not Recovered/Not Resolved]
  - Dental caries [Not Recovered/Not Resolved]
